FAERS Safety Report 19952645 (Version 4)
Quarter: 2022Q1

REPORT INFORMATION
  Report Type: Spontaneous
  Country: NL (occurrence: NL)
  Receive Date: 20211014
  Receipt Date: 20220125
  Transmission Date: 20220424
  Serious: Yes (Other)
  Sender: FDA-Public Use
  Company Number: NL-002147023-NVSC2021NL226675

PATIENT
  Sex: Female

DRUGS (7)
  1. XOLAIR [Suspect]
     Active Substance: OMALIZUMAB
     Indication: Asthma
     Dosage: UNK (8 INJECTIONS PER MONTH)
     Route: 065
  2. XOLAIR [Suspect]
     Active Substance: OMALIZUMAB
     Route: 065
     Dates: start: 20211001
  3. XOLAIR [Suspect]
     Active Substance: OMALIZUMAB
     Dosage: 20 MG, BID
     Route: 065
  4. XOLAIR [Suspect]
     Active Substance: OMALIZUMAB
     Dosage: 525 MG (2X PER MONTH 4 INJECTIONS) (PER ADMINISTRATION)
     Route: 065
  5. XOLAIR [Suspect]
     Active Substance: OMALIZUMAB
     Dosage: 525 MG (2X PER MONTH 4 INJECTIONS) (PER ADMINISTRATION)
     Route: 065
  6. ZOPICLONE [Concomitant]
     Active Substance: ZOPICLONE
  7. HYDROCORTISONE [Concomitant]
     Active Substance: HYDROCORTISONE
     Dosage: BETWEEN 10 AND 50 MG, QD

REACTIONS (14)
  - Monoplegia [Unknown]
  - Aspergillus infection [Unknown]
  - Circulatory collapse [Not Recovered/Not Resolved]
  - Hypochromic anaemia [Unknown]
  - Iron deficiency [Unknown]
  - Oedema peripheral [Recovering/Resolving]
  - Dizziness [Not Recovered/Not Resolved]
  - Contraindicated product administered [Unknown]
  - Dyspnoea [Not Recovered/Not Resolved]
  - Movement disorder [Unknown]
  - Orthostatic hypotension [Unknown]
  - Constipation [Unknown]
  - Hypotension [Recovering/Resolving]
  - Drug ineffective [Unknown]
